FAERS Safety Report 10703918 (Version 1)
Quarter: 2015Q1

REPORT INFORMATION
  Report Type: Spontaneous
  Country: HK (occurrence: HK)
  Receive Date: 20150112
  Receipt Date: 20150112
  Transmission Date: 20150721
  Serious: Yes (Other)
  Sender: FDA-Public Use
  Company Number: HK-JNJFOC-20150104855

PATIENT

DRUGS (1)
  1. GOLIMUMAB [Suspect]
     Active Substance: GOLIMUMAB
     Indication: RHEUMATIC DISORDER
     Route: 058

REACTIONS (4)
  - Infection [Unknown]
  - Rash [Unknown]
  - Hypersensitivity [Unknown]
  - Tuberculosis [Unknown]
